FAERS Safety Report 11130998 (Version 1)
Quarter: 2015Q2

REPORT INFORMATION
  Report Type: Spontaneous
  Country: US (occurrence: US)
  Receive Date: 20150522
  Receipt Date: 20150522
  Transmission Date: 20150821
  Serious: Yes (Hospitalization)
  Sender: FDA-Public Use
  Company Number: US-BIOGENIDEC-2015BI067696

PATIENT
  Age: 54 Year
  Sex: Female

DRUGS (10)
  1. TECFIDERA [Suspect]
     Active Substance: DIMETHYL FUMARATE
     Indication: MULTIPLE SCLEROSIS
     Route: 048
  2. VITAMIN C [Concomitant]
     Active Substance: ASCORBIC ACID
  3. MELOXICAM. [Concomitant]
     Active Substance: MELOXICAM
  4. VITAMIN D3 [Concomitant]
     Active Substance: CHOLECALCIFEROL
  5. LOSARTIN POTASSIUM [Concomitant]
  6. AMITRIPTYLINE HCI [Concomitant]
  7. CYCLOBENZAPRINE HCI [Concomitant]
  8. POTASSIUM BITARTRATE. [Concomitant]
     Active Substance: POTASSIUM BITARTRATE
  9. CARVEDILOL. [Concomitant]
     Active Substance: CARVEDILOL
  10. AMLODIPINE BESYLATE. [Concomitant]
     Active Substance: AMLODIPINE BESYLATE

REACTIONS (1)
  - Spinal operation [Unknown]
